FAERS Safety Report 8020504 (Version 3)
Quarter: 2013Q4

REPORT INFORMATION
  Report Type: Spontaneous
  Country: US (occurrence: US)
  Receive Date: 20110705
  Receipt Date: 20131223
  Transmission Date: 20140711
  Serious: Yes (Hospitalization)
  Sender: FDA-Public Use
  Company Number: US-BAYER-2011-057016

PATIENT
  Age: 37 Year
  Sex: Female

DRUGS (1)
  1. YASMIN [Suspect]
     Indication: CONTRACEPTION
     Dosage: UNK
     Dates: start: 20060606, end: 20081010

REACTIONS (9)
  - Cholecystitis [None]
  - Cholelithiasis [None]
  - Cholecystitis acute [None]
  - Gallbladder disorder [None]
  - Hepatic enzyme increased [None]
  - Amylase increased [None]
  - Abdominal pain upper [None]
  - Nausea [None]
  - Pain [None]
